FAERS Safety Report 7416111-2 (Version None)
Quarter: 2011Q2

REPORT INFORMATION
  Report Type: 
  Country: None (occurrence: None)
  Receive Date: 20110414
  Receipt Date: 20110405
  Transmission Date: 20111010
  Serious: Yes (Other)
  Sender: FDA-Public Use
  Company Number: US-ROCHE-770319

PATIENT
  Sex: Male

DRUGS (4)
  1. PEGINTERFERON ALFA-2A [Suspect]
     Route: 064
     Dates: start: 20090716, end: 20100101
  2. RIBAVIRIN [Suspect]
     Route: 064
     Dates: start: 20090716, end: 20100101
  3. PRILOSEC [Concomitant]
  4. ZYRTEC [Concomitant]
     Indication: SEASONAL ALLERGY

REACTIONS (1)
  - UMBILICAL CORD VASCULAR DISORDER [None]
